FAERS Safety Report 6599104-7 (Version None)
Quarter: 2010Q1

REPORT INFORMATION
  Report Type: 
  Country: None (occurrence: None)
  Receive Date: 20100224
  Receipt Date: 20091005
  Transmission Date: 20100710
  Serious: No
  Sender: FDA-Public Use
  Company Number: US-BRISTOL-MYERS SQUIBB COMPANY-14805600

PATIENT
  Age: 55 Year
  Sex: Female

DRUGS (4)
  1. GLUCOPHAGE [Suspect]
     Indication: TYPE 2 DIABETES MELLITUS
     Dates: start: 20090917
  2. ZETIA [Concomitant]
  3. LEXAPRO [Concomitant]
  4. ATENOLOL [Concomitant]

REACTIONS (2)
  - BLISTER [None]
  - ERYTHEMA [None]
